FAERS Safety Report 8669372 (Version 3)
Quarter: 2013Q1

REPORT INFORMATION
  Report Type: Spontaneous
  Country: US (occurrence: US)
  Receive Date: 20120717
  Receipt Date: 20130214
  Transmission Date: 20140127
  Serious: Yes (Other)
  Sender: FDA-Public Use
  Company Number: US-PFIZER INC-2012169675

PATIENT
  Age: 49 Year
  Sex: Female
  Weight: 104 kg

DRUGS (9)
  1. SOMAVERT [Suspect]
     Indication: ACROMEGALY
     Dosage: 10 MG, 1X/DAY
     Route: 058
     Dates: start: 20120622
  2. SOMAVERT [Suspect]
     Indication: ABNORMAL BEHAVIOUR
     Dosage: UNK, 1X/DAY
  3. SOMAVERT [Suspect]
     Indication: PITUITARY TUMOUR
     Dosage: 10 MG, UNK
     Route: 058
     Dates: start: 201207
  4. SOMAVERT [Suspect]
     Indication: GIGANTISM
     Dosage: 15 MG, DAILY
     Route: 048
     Dates: start: 20120620, end: 20121113
  5. CRESTOR [Concomitant]
     Dosage: 10 MG, 1X/DAY
     Route: 048
  6. KLONOPIN [Concomitant]
     Dosage: UNK
  7. IBUPROFEN [Concomitant]
     Dosage: 600 MG, 2X/DAY (BID)
  8. DULCOLAX [Concomitant]
     Dosage: UNK
  9. CO-Q-10 [Concomitant]
     Dosage: UNK

REACTIONS (7)
  - Lipodystrophy acquired [Not Recovered/Not Resolved]
  - Fatigue [Recovered/Resolved]
  - Dizziness [Not Recovered/Not Resolved]
  - Nausea [Recovered/Resolved]
  - Hepatic function abnormal [Unknown]
  - Constipation [Not Recovered/Not Resolved]
  - Incorrect route of drug administration [Unknown]
